FAERS Safety Report 9121216 (Version 2)
Quarter: 2013Q2

REPORT INFORMATION
  Report Type: Spontaneous
  Country: US (occurrence: US)
  Receive Date: 20130225
  Receipt Date: 20130515
  Transmission Date: 20140414
  Serious: Yes (Hospitalization, Other)
  Sender: FDA-Public Use
  Company Number: US-ROCHE-701334

PATIENT
  Age: 15 Year
  Sex: Female
  Weight: 71.1 kg

DRUGS (2)
  1. ACCUTANE [Suspect]
     Indication: ACNE
     Route: 065
     Dates: start: 19940216, end: 19940628
  2. ACCUTANE [Suspect]
     Route: 065
     Dates: start: 199712, end: 199806

REACTIONS (12)
  - Colitis ulcerative [Unknown]
  - Inflammatory bowel disease [Unknown]
  - Crohn^s disease [Unknown]
  - Depression [Unknown]
  - Gastrointestinal injury [Unknown]
  - Rectal polyp [Unknown]
  - Proctitis [Unknown]
  - Blood cholesterol increased [Unknown]
  - Blood triglycerides increased [Unknown]
  - Liver function test abnormal [Unknown]
  - Dry skin [Unknown]
  - Lip dry [Unknown]
